FAERS Safety Report 12662331 (Version 3)
Quarter: 2016Q3

REPORT INFORMATION
  Report Type: Report from Study
  Country: AU (occurrence: AU)
  Receive Date: 20160817
  Receipt Date: 20160829
  Transmission Date: 20161109
  Serious: Yes (Hospitalization)
  Sender: FDA-Public Use
  Company Number: AU-ABBVIE-16P-008-1700983-00

PATIENT
  Age: 68 Year
  Sex: Male

DRUGS (2)
  1. DUODOPA [Suspect]
     Active Substance: CARBIDOPA\LEVODOPA
     Indication: PARKINSON^S DISEASE
     Dosage: 24HR INFUSION
     Route: 050
     Dates: start: 20080602
  2. DUODOPA [Suspect]
     Active Substance: CARBIDOPA\LEVODOPA
     Dosage: 24HR INFUSION
     Route: 050
     Dates: start: 20160812

REACTIONS (5)
  - Fistula [Unknown]
  - Catheter site swelling [Unknown]
  - Device dislocation [Unknown]
  - Stoma site infection [Unknown]
  - Stoma site pain [Unknown]

NARRATIVE: CASE EVENT DATE: 20160807
